FAERS Safety Report 11053312 (Version 1)
Quarter: 2015Q2

REPORT INFORMATION
  Report Type: Spontaneous
  Country: IN (occurrence: IN)
  Receive Date: 20150421
  Receipt Date: 20150421
  Transmission Date: 20150821
  Serious: Yes (Other)
  Sender: FDA-Public Use
  Company Number: PHHY2015IN046685

PATIENT
  Age: 5 Year
  Sex: Female

DRUGS (1)
  1. CICLOSPORIN [Suspect]
     Active Substance: CYCLOSPORINE
     Indication: GLOMERULONEPHRITIS
     Route: 065

REACTIONS (8)
  - Altered state of consciousness [Recovered/Resolved]
  - Hemiparesis [Recovered/Resolved]
  - Toxicity to various agents [Unknown]
  - Product use issue [Unknown]
  - Posterior reversible encephalopathy syndrome [Recovered/Resolved]
  - Overdose [Unknown]
  - Blindness cortical [Recovered/Resolved]
  - Seizure [Recovered/Resolved]
